FAERS Safety Report 23064381 (Version 1)
Quarter: 2023Q4

REPORT INFORMATION
  Report Type: Spontaneous
  Country: US (occurrence: None)
  Receive Date: 20231013
  Receipt Date: 20231013
  Transmission Date: 20240110
  Serious: Yes (Hospitalization)
  Sender: FDA-Public Use
  Company Number: None

PATIENT
  Age: 57 Year
  Sex: Male

DRUGS (1)
  1. CLOZAPINE [Suspect]
     Active Substance: CLOZAPINE
     Dosage: FREQUENCY : DAILY;?
     Route: 048
     Dates: start: 20170720, end: 20220113

REACTIONS (5)
  - Blood pressure systolic decreased [None]
  - Leukocytosis [None]
  - Small intestinal obstruction [None]
  - Blood electrolytes abnormal [None]
  - Laboratory test abnormal [None]

NARRATIVE: CASE EVENT DATE: 20230113
